FAERS Safety Report 17376821 (Version 1)
Quarter: 2020Q1

REPORT INFORMATION
  Report Type: Spontaneous
  Country: US (occurrence: US)
  Receive Date: 20200205
  Receipt Date: 20200205
  Transmission Date: 20200409
  Serious: Yes (Life-Threatening, Hospitalization)
  Sender: FDA-Public Use
  Company Number: None

PATIENT
  Age: 87 Year
  Sex: Male
  Weight: 81 kg

DRUGS (16)
  1. LEVOTHYROXINE. [Concomitant]
     Active Substance: LEVOTHYROXINE
  2. TERAZOSIN [Concomitant]
     Active Substance: TERAZOSIN HYDROCHLORIDE
  3. FINASTERIDE. [Concomitant]
     Active Substance: FINASTERIDE
  4. CARVEDILOL. [Concomitant]
     Active Substance: CARVEDILOL
  5. SPIRONOLACTONE. [Concomitant]
     Active Substance: SPIRONOLACTONE
  6. COENZYME Q10 [Concomitant]
     Active Substance: UBIDECARENONE
  7. LOSARTAN/HCTZ [Concomitant]
     Active Substance: HYDROCHLOROTHIAZIDE\LOSARTAN
  8. NORCO [Concomitant]
     Active Substance: ACETAMINOPHEN\HYDROCODONE BITARTRATE
  9. CALCIUM [Concomitant]
     Active Substance: CALCIUM
  10. DRAMAMINE [Concomitant]
     Active Substance: DIMENHYDRINATE
  11. SUCRALFATE. [Concomitant]
     Active Substance: SUCRALFATE
  12. VITAMIN D3 [Concomitant]
     Active Substance: CHOLECALCIFEROL
  13. IRON [Concomitant]
     Active Substance: IRON
  14. DOCUSATE [Concomitant]
     Active Substance: DOCUSATE
  15. PANTOPRAZOLE [Concomitant]
     Active Substance: PANTOPRAZOLE
  16. PRIALT [Suspect]
     Active Substance: ZICONOTIDE ACETATE
     Indication: PAIN
     Dates: start: 20200122, end: 20200202

REACTIONS (7)
  - Urinary retention [None]
  - Drug delivery device implantation [None]
  - Adverse drug reaction [None]
  - Depressed level of consciousness [None]
  - Disorientation [None]
  - Confusional state [None]
  - Mechanical ventilation [None]

NARRATIVE: CASE EVENT DATE: 20200129
